FAERS Safety Report 10397161 (Version 2)
Quarter: 2014Q4

REPORT INFORMATION
  Report Type: Spontaneous
  Country: US (occurrence: US)
  Receive Date: 20140820
  Receipt Date: 20141001
  Transmission Date: 20150528
  Serious: No
  Sender: FDA-Public Use
  Company Number: US-009507513-1408USA009404

PATIENT
  Age: 27 Year
  Sex: Female
  Weight: 106.58 kg

DRUGS (1)
  1. NEXPLANON [Suspect]
     Active Substance: ETONOGESTREL
     Indication: CONTRACEPTION
     Dosage: 1 ROD 68MG, LEFT ARM
     Route: 059
     Dates: start: 20140417

REACTIONS (7)
  - Skin irritation [Recovered/Resolved]
  - Implant site infection [Recovered/Resolved]
  - Arthropod bite [Unknown]
  - Device expulsion [Unknown]
  - Purulence [Unknown]
  - Device difficult to use [Not Recovered/Not Resolved]
  - Medical device complication [Not Recovered/Not Resolved]

NARRATIVE: CASE EVENT DATE: 2014
